FAERS Safety Report 7130718-1 (Version None)
Quarter: 2010Q4

REPORT INFORMATION
  Report Type: 
  Country: None (occurrence: None)
  Receive Date: 20101201
  Receipt Date: 20101118
  Transmission Date: 20110411
  Serious: Yes (Other)
  Sender: FDA-Public Use
  Company Number: US-ROCHE-722536

PATIENT
  Sex: Male
  Weight: 108.9 kg

DRUGS (1)
  1. ACCUTANE [Suspect]
     Indication: ACNE
     Dosage: DAILY
     Route: 065
     Dates: start: 19980317, end: 19980801

REACTIONS (7)
  - BLOOD CHOLESTEROL INCREASED [None]
  - COLONIC POLYP [None]
  - CROHN'S DISEASE [None]
  - GASTROINTESTINAL INJURY [None]
  - INFLAMMATORY BOWEL DISEASE [None]
  - OBESITY [None]
  - RECTAL FISSURE [None]
